FAERS Safety Report 4881936-4 (Version None)
Quarter: 2006Q1

REPORT INFORMATION
  Report Type: 
  Country: None (occurrence: None)
  Receive Date: 20060112
  Receipt Date: 20060103
  Transmission Date: 20060701
  Serious: Yes (Hospitalization)
  Sender: FDA-Public Use
  Company Number: HQWYE170103JAN06

PATIENT
  Age: 57 Year
  Sex: Male

DRUGS (6)
  1. RAPAMUNE [Suspect]
     Indication: PROPHYLAXIS AGAINST TRANSPLANT REJECTION
     Dosage: 5 MG, ORAL
     Route: 048
     Dates: start: 20051220
  2. MYCOPHENOLATE MOFETIL  (MYCOPHENOLATE MOFETIL) [Concomitant]
  3. SULFAMETHOXAZOLE + TRIMETHOPRIM [Concomitant]
  4. GANCICLOVIR SODIUM [Concomitant]
  5. PROTONIX [Concomitant]
  6. FUROSEMIDE [Concomitant]

REACTIONS (4)
  - DIARRHOEA [None]
  - HAEMODIALYSIS [None]
  - PROCEDURAL HYPOTENSION [None]
  - RENAL TUBULAR NECROSIS [None]
